FAERS Safety Report 24885386 (Version 1)
Quarter: 2025Q1

REPORT INFORMATION
  Report Type: Spontaneous
  Country: US (occurrence: US)
  Receive Date: 20250124
  Receipt Date: 20250124
  Transmission Date: 20250409
  Serious: No
  Sender: MERCK
  Company Number: US-009507513-2501USA004330

PATIENT
  Sex: Male

DRUGS (2)
  1. JANUVIA [Suspect]
     Active Substance: SITAGLIPTIN PHOSPHATE
     Indication: Diabetes mellitus
     Dosage: 100 MILLIGRAM, QD
     Route: 048
  2. LIPITOR [Concomitant]
     Active Substance: ATORVASTATIN CALCIUM

REACTIONS (4)
  - Blood glucose increased [Not Recovered/Not Resolved]
  - Surgery [Not Recovered/Not Resolved]
  - Weight decreased [Not Recovered/Not Resolved]
  - Inability to afford medication [Unknown]
